FAERS Safety Report 6893168-9 (Version None)
Quarter: 2010Q3

REPORT INFORMATION
  Report Type: 
  Country: None (occurrence: None)
  Receive Date: 20100731
  Receipt Date: 20090616
  Transmission Date: 20110219
  Serious: No
  Sender: FDA-Public Use
  Company Number: US-PFIZER INC-2009198409

PATIENT
  Sex: Female

DRUGS (5)
  1. NEURONTIN [Suspect]
     Dosage: UNK
  2. EFFEXOR [Suspect]
  3. CLONIDINE [Suspect]
  4. PROZAC [Suspect]
  5. VICODIN [Suspect]
     Indication: BACK PAIN

REACTIONS (2)
  - ARTHRALGIA [None]
  - HOT FLUSH [None]
